FAERS Safety Report 11246483 (Version 1)
Quarter: 2015Q3

REPORT INFORMATION
  Report Type: Spontaneous
  Country: US (occurrence: None)
  Receive Date: 20150706
  Receipt Date: 20150706
  Transmission Date: 20151125
  Serious: No
  Sender: FDA-Public Use
  Company Number: None

PATIENT
  Age: 54 Year
  Sex: Female
  Weight: 117.94 kg

DRUGS (6)
  1. ADVIL [Concomitant]
     Active Substance: IBUPROFEN
  2. METFORMIN [Concomitant]
     Active Substance: METFORMIN HYDROCHLORIDE
  3. HUMALOG [Concomitant]
     Active Substance: INSULIN LISPRO
  4. REMICADE [Suspect]
     Active Substance: INFLIXIMAB
     Indication: SARCOIDOSIS
     Dosage: INFUSION BAG; ONCE 4 WEEKS
     Route: 042
  5. METHOTREXATE [Concomitant]
     Active Substance: METHOTREXATE
  6. LANTUS [Concomitant]
     Active Substance: INSULIN GLARGINE

REACTIONS (7)
  - Feeling hot [None]
  - Muscle tightness [None]
  - Rash [None]
  - Discomfort [None]
  - Flushing [None]
  - Heart rate decreased [None]
  - Tremor [None]

NARRATIVE: CASE EVENT DATE: 20150611
